FAERS Safety Report 16326288 (Version 1)
Quarter: 2019Q2

REPORT INFORMATION
  Report Type: Spontaneous
  Country: US (occurrence: US)
  Receive Date: 20190517
  Receipt Date: 20190517
  Transmission Date: 20190711
  Serious: No
  Sender: FDA-Public Use
  Company Number: US-009507513-1905USA007610

PATIENT
  Sex: Female

DRUGS (1)
  1. PREGNYL [Suspect]
     Active Substance: CHORIOGONADOTROPIN ALFA
     Indication: OLIGOMENORRHOEA
     Dosage: 10,000 UNIT MDV 60 INJECT ONCE
     Route: 030
     Dates: start: 20190404

REACTIONS (1)
  - Nausea [Unknown]
